FAERS Safety Report 14744869 (Version 1)
Quarter: 2018Q2

REPORT INFORMATION
  Report Type: Report from Study
  Country: US (occurrence: US)
  Receive Date: 20180411
  Receipt Date: 20180411
  Transmission Date: 20180711
  Serious: Yes (Hospitalization, Congenital Anomaly, Other)
  Sender: FDA-Public Use
  Company Number: US-VISTAPHARM, INC.-VER201804-000545

PATIENT
  Weight: 2.55 kg

DRUGS (8)
  1. FLUCONAZOLE. [Concomitant]
     Active Substance: FLUCONAZOLE
     Route: 061
  2. AMPHOTERICIN B DEOXYCHOLATE [Concomitant]
     Active Substance: AMPHOTERICIN B
     Indication: CANDIDA INFECTION
  3. GENTAMICIN. [Concomitant]
     Active Substance: GENTAMICIN
     Indication: BANDAEMIA
  4. FLUCONAZOLE. [Concomitant]
     Active Substance: FLUCONAZOLE
     Indication: CANDIDA INFECTION
     Route: 048
  5. NYSTATIN. [Suspect]
     Active Substance: NYSTATIN
     Indication: CANDIDA INFECTION
     Dosage: ORAL AND TOPICAL
  6. GENTAMICIN. [Concomitant]
     Active Substance: GENTAMICIN
     Indication: TACHYPNOEA
  7. AMPICILLIN [Concomitant]
     Active Substance: AMPICILLIN
     Indication: BANDAEMIA
  8. AMPICILLIN [Concomitant]
     Active Substance: AMPICILLIN
     Indication: TACHYPNOEA

REACTIONS (2)
  - Systemic candida [Recovering/Resolving]
  - Drug ineffective [Unknown]
